FAERS Safety Report 9170995 (Version 6)
Quarter: 2013Q3

REPORT INFORMATION
  Report Type: Report from Study
  Country: AU (occurrence: AU)
  Receive Date: 20130319
  Receipt Date: 20130903
  Transmission Date: 20140515
  Serious: Yes (Hospitalization)
  Sender: FDA-Public Use
  Company Number: AU-SANOFI-AVENTIS-2013SA024923

PATIENT
  Age: 71 Year
  Sex: Male
  Weight: 100 kg

DRUGS (9)
  1. CABAZITAXEL [Suspect]
     Indication: PROSTATE CANCER
     Route: 042
     Dates: start: 20121107, end: 20121107
  2. CABAZITAXEL [Suspect]
     Indication: PROSTATE CANCER
     Route: 042
     Dates: start: 20130221, end: 20130221
  3. PREDNISONE [Suspect]
     Indication: PROSTATE CANCER
     Route: 048
     Dates: start: 20121107, end: 20130317
  4. LUCRIN [Concomitant]
     Indication: PROPHYLAXIS
     Route: 030
     Dates: start: 201104
  5. KARVEZIDE [Concomitant]
     Indication: PROPHYLAXIS
     Route: 048
     Dates: start: 1997
  6. XGEVA [Concomitant]
     Indication: PROPHYLAXIS
     Route: 058
     Dates: start: 20120814
  7. CALCIUM/VITAMIN D [Concomitant]
     Indication: PROPHYLAXIS
     Route: 048
     Dates: start: 201208
  8. CYMBALTA [Concomitant]
     Indication: PROPHYLAXIS
     Route: 048
     Dates: start: 201202
  9. PARACETAMOL [Concomitant]
     Indication: PROPHYLAXIS
     Route: 048
     Dates: start: 20121121

REACTIONS (2)
  - Haematemesis [Recovered/Resolved]
  - Duodenal ulcer [Recovered/Resolved]
